FAERS Safety Report 6768412-9 (Version None)
Quarter: 2010Q2

REPORT INFORMATION
  Report Type: 
  Country: None (occurrence: None)
  Receive Date: 20100614
  Receipt Date: 20100604
  Transmission Date: 20101027
  Serious: Yes (Hospitalization, Other)
  Sender: FDA-Public Use
  Company Number: US-AMGEN-QUU414418

PATIENT
  Sex: Female

DRUGS (10)
  1. NPLATE [Suspect]
     Indication: IDIOPATHIC THROMBOCYTOPENIC PURPURA
     Dates: start: 20090528, end: 20100104
  2. TYLENOL [Concomitant]
  3. COLACE [Concomitant]
  4. PROTONIX [Concomitant]
  5. SENOKOT [Concomitant]
  6. PERCOCET [Concomitant]
  7. CALCIUM WITH VITAMIN D [Concomitant]
  8. MULTI-VITAMINS [Concomitant]
  9. ENSURE [Concomitant]
  10. KLONOPIN [Concomitant]

REACTIONS (9)
  - ASTHENIA [None]
  - BACK PAIN [None]
  - CELLULITIS [None]
  - FAILURE TO THRIVE [None]
  - FALL [None]
  - GUILLAIN-BARRE SYNDROME [None]
  - SKIN LACERATION [None]
  - URINARY TRACT INFECTION [None]
  - WEIGHT DECREASED [None]
